FAERS Safety Report 21075940 (Version 1)
Quarter: 2022Q3

REPORT INFORMATION
  Report Type: Spontaneous
  Country: US (occurrence: US)
  Receive Date: 20220713
  Receipt Date: 20220713
  Transmission Date: 20221027
  Serious: No
  Sender: FDA-Public Use
  Company Number: US-MYOVANT SCIENCES GMBH-2022MYSCI0400372

PATIENT
  Age: 76 Year
  Sex: Male

DRUGS (9)
  1. ORGOVYX [Suspect]
     Active Substance: RELUGOLIX
     Indication: Prostate cancer
     Dosage: 360 MILLIGRAM, ONE TIME DOSE
     Route: 048
     Dates: start: 202112, end: 202112
  2. ORGOVYX [Suspect]
     Active Substance: RELUGOLIX
     Dosage: 120 MILLIGRAM, QD
     Route: 048
     Dates: start: 202112, end: 202204
  3. DOXAZOSIN [Concomitant]
     Active Substance: DOXAZOSIN MESYLATE
     Indication: Blood pressure abnormal
     Dosage: 8 MILLIGRAM, QD
     Route: 048
  4. DOXAZOSIN [Concomitant]
     Active Substance: DOXAZOSIN MESYLATE
     Indication: Prostatic disorder
  5. LISINOPRIL [Concomitant]
     Active Substance: LISINOPRIL
     Indication: Blood pressure abnormal
     Dosage: 20 MILLIGRAM, QD
     Route: 048
  6. ATENOLOL [Concomitant]
     Active Substance: ATENOLOL
     Indication: Blood pressure abnormal
     Dosage: 25 MILLIGRAM, QD
     Route: 048
  7. HYDROCHLOROTHIAZIDE [Concomitant]
     Active Substance: HYDROCHLOROTHIAZIDE
     Indication: Blood pressure abnormal
     Dosage: 12.5 MILLIGRAM, QD
     Route: 048
  8. CITALOPRAM [Concomitant]
     Active Substance: CITALOPRAM HYDROBROMIDE
     Indication: Depression
     Dosage: 20 MILLIGRAM, QD
     Route: 048
  9. FAMOTIDINE [Concomitant]
     Active Substance: FAMOTIDINE
     Indication: Abdominal discomfort
     Dosage: 40 UNK, QD
     Route: 048

REACTIONS (8)
  - Blood pressure decreased [Unknown]
  - Dizziness [Unknown]
  - Pain in jaw [Not Recovered/Not Resolved]
  - Back pain [Recovered/Resolved]
  - Constipation [Recovered/Resolved]
  - Diarrhoea [Recovered/Resolved]
  - Ear pain [Unknown]
  - Toothache [Not Recovered/Not Resolved]

NARRATIVE: CASE EVENT DATE: 20220301
